FAERS Safety Report 14746662 (Version 2)
Quarter: 2018Q2

REPORT INFORMATION
  Report Type: Spontaneous
  Country: US (occurrence: US)
  Receive Date: 20180411
  Receipt Date: 20180503
  Transmission Date: 20180711
  Serious: Yes (Hospitalization)
  Sender: FDA-Public Use
  Company Number: US-GLAXOSMITHKLINE-US2018059376

PATIENT
  Sex: Female

DRUGS (15)
  1. CRANBERRY. [Concomitant]
     Active Substance: CRANBERRY
  2. IRON [Concomitant]
     Active Substance: IRON
  3. TRAZODONE [Concomitant]
     Active Substance: TRAZODONE HYDROCHLORIDE
  4. ADVAIR DISKUS [Suspect]
     Active Substance: FLUTICASONE PROPIONATE\SALMETEROL XINAFOATE
     Indication: ASTHMA
     Dosage: 1 PUFF(S), BID
     Route: 055
     Dates: start: 1999, end: 201803
  5. EFFEXOR [Concomitant]
     Active Substance: VENLAFAXINE HYDROCHLORIDE
  6. SINGULAIR [Concomitant]
     Active Substance: MONTELUKAST SODIUM
  7. TOPAMAX [Concomitant]
     Active Substance: TOPIRAMATE
  8. ZYRTEC [Concomitant]
     Active Substance: CETIRIZINE HYDROCHLORIDE
  9. ACIDOPHILUS [Concomitant]
     Active Substance: LACTOBACILLUS ACIDOPHILUS
  10. TYLENOL [Concomitant]
     Active Substance: ACETAMINOPHEN
  11. MAGNESIUM [Concomitant]
     Active Substance: MAGNESIUM
  12. MOBIC [Concomitant]
     Active Substance: MELOXICAM
  13. RANITIDINE. [Concomitant]
     Active Substance: RANITIDINE
  14. VENTOLIN HFA [Suspect]
     Active Substance: ALBUTEROL SULFATE
     Indication: ASTHMA
     Dosage: 2 PUFF(S), PRN
     Route: 055
     Dates: start: 201802
  15. ZINC. [Concomitant]
     Active Substance: ZINC

REACTIONS (3)
  - Bronchitis [Recovered/Resolved]
  - Asthma [Unknown]
  - Obstructive airways disorder [Unknown]

NARRATIVE: CASE EVENT DATE: 2018
